FAERS Safety Report 5800589-1 (Version None)
Quarter: 2008Q3

REPORT INFORMATION
  Report Type: 
  Country: None (occurrence: None)
  Receive Date: 20080702
  Receipt Date: 20080702
  Transmission Date: 20090109
  Serious: Yes (Hospitalization)
  Sender: FDA-Public Use
  Company Number: None

PATIENT
  Age: 71 Year
  Sex: Female
  Weight: 33.3394 kg

DRUGS (12)
  1. AMARYL [Suspect]
     Indication: BLOOD GLUCOSE INCREASED
     Dosage: 4MG DAILY PO
     Route: 048
     Dates: start: 20080627, end: 20080629
  2. DILTIAZEM [Concomitant]
  3. ALPRAZOLAM [Concomitant]
  4. FEMARA [Concomitant]
  5. SINGULAIR [Concomitant]
  6. PREDNISONE TAB [Concomitant]
  7. DIGOXIN [Concomitant]
  8. ADVAIR DISKUS 100/50 [Concomitant]
  9. XOPENEX [Concomitant]
  10. TYLENOL [Concomitant]
  11. OMEPRAZOLE [Concomitant]
  12. FLUOROURACIL [Concomitant]

REACTIONS (3)
  - BLOOD GLUCOSE DECREASED [None]
  - HAEMOPTYSIS [None]
  - SOMNOLENCE [None]
